FAERS Safety Report 12875701 (Version 1)
Quarter: 2016Q4

REPORT INFORMATION
  Report Type: Spontaneous
  Country: US (occurrence: US)
  Receive Date: 20161020
  Receipt Date: 20161020
  Transmission Date: 20170207
  Serious: No
  Sender: FDA-Public Use
  Company Number: None

PATIENT
  Age: 61 Year
  Sex: Male
  Weight: 106.69 kg

DRUGS (2)
  1. TELAVANCIN [Suspect]
     Active Substance: TELAVANCIN
     Route: 042
     Dates: start: 20160923, end: 20161003
  2. INVANZ [Suspect]
     Active Substance: ERTAPENEM SODIUM
     Indication: PNEUMONIA
     Route: 042
     Dates: start: 20160923, end: 20161003

REACTIONS (2)
  - Dizziness [None]
  - Incorrect drug administration rate [None]

NARRATIVE: CASE EVENT DATE: 20160925
